FAERS Safety Report 17564249 (Version 1)
Quarter: 2020Q1

REPORT INFORMATION
  Report Type: Spontaneous
  Country: GB (occurrence: GB)
  Receive Date: 20200320
  Receipt Date: 20200320
  Transmission Date: 20200409
  Serious: Yes (Other)
  Sender: FDA-Public Use
  Company Number: ALC2020GB002289

PATIENT

DRUGS (1)
  1. FLUORESCEIN SODIUM. [Suspect]
     Active Substance: FLUORESCEIN SODIUM
     Indication: DIAGNOSTIC PROCEDURE
     Dosage: 1 MG
     Route: 047
     Dates: start: 20181101, end: 20200201

REACTIONS (5)
  - Nausea [Recovered/Resolved with Sequelae]
  - Eye pain [Recovered/Resolved]
  - Vomiting [Recovered/Resolved with Sequelae]
  - Headache [Recovered/Resolved with Sequelae]
  - Confusional state [Recovered/Resolved with Sequelae]
